FAERS Safety Report 8041673-4 (Version None)
Quarter: 2012Q1

REPORT INFORMATION
  Report Type: 
  Country: None (occurrence: None)
  Receive Date: 20120112
  Receipt Date: 20120103
  Transmission Date: 20120608
  Serious: Yes (Other)
  Sender: FDA-Public Use
  Company Number: US-ELI_LILLY_AND_COMPANY-US201201001244

PATIENT
  Sex: Female

DRUGS (1)
  1. CYMBALTA [Suspect]
     Indication: NEURALGIA
     Dosage: 30 MG, BID
     Dates: start: 20080101

REACTIONS (4)
  - LUNG CANCER METASTATIC [None]
  - CHILLS [None]
  - OFF LABEL USE [None]
  - HYPERHIDROSIS [None]
